FAERS Safety Report 16371070 (Version 1)
Quarter: 2019Q2

REPORT INFORMATION
  Report Type: Spontaneous
  Country: US (occurrence: US)
  Receive Date: 20190423
  Receipt Date: 20190423
  Transmission Date: 20190711
  Serious: Yes (Hospitalization)
  Sender: FDA-Public Use
  Company Number: None

PATIENT
  Age: 53 Year
  Sex: Male

DRUGS (1)
  1. SUTENT [Suspect]
     Active Substance: SUNITINIB MALATE
     Indication: PRODUCT USED FOR UNKNOWN INDICATION
     Dosage: ?          OTHER DOSE:400-250 MG;?
     Route: 048
     Dates: start: 20190302

REACTIONS (3)
  - Pulmonary embolism [None]
  - Pain in extremity [None]
  - Aphthous ulcer [None]

NARRATIVE: CASE EVENT DATE: 2019
